FAERS Safety Report 7106942-0 (Version None)
Quarter: 2010Q4

REPORT INFORMATION
  Report Type: 
  Country: None (occurrence: None)
  Receive Date: 20101116
  Receipt Date: 20100902
  Transmission Date: 20110411
  Serious: No
  Sender: FDA-Public Use
  Company Number: US-ABBOTT-10P-163-0668058-00

PATIENT
  Sex: Female
  Weight: 72.64 kg

DRUGS (9)
  1. SIMCOR [Suspect]
     Indication: HIGH DENSITY LIPOPROTEIN
     Dosage: 500/20MG AT BEDTIME
     Dates: start: 20100801
  2. SIMCOR [Suspect]
     Indication: LOW DENSITY LIPOPROTEIN
  3. SIMCOR [Suspect]
     Indication: BLOOD TRIGLYCERIDES
  4. SIMCOR [Suspect]
     Indication: BLOOD CHOLESTEROL
  5. CELEBREX [Concomitant]
     Indication: PRODUCT USED FOR UNKNOWN INDICATION
  6. VITAMIN D [Concomitant]
     Indication: PRODUCT USED FOR UNKNOWN INDICATION
  7. FISH OIL [Concomitant]
     Indication: PRODUCT USED FOR UNKNOWN INDICATION
  8. LOTREL [Concomitant]
     Indication: PRODUCT USED FOR UNKNOWN INDICATION
  9. ASPIRIN [Concomitant]
     Indication: PRODUCT USED FOR UNKNOWN INDICATION

REACTIONS (3)
  - DYSPEPSIA [None]
  - HUNGER [None]
  - MUSCLE SPASMS [None]
